FAERS Safety Report 21689907 (Version 1)
Quarter: 2022Q4

REPORT INFORMATION
  Report Type: Spontaneous
  Country: US (occurrence: US)
  Receive Date: 20221206
  Receipt Date: 20221206
  Transmission Date: 20230112
  Serious: No
  Sender: FDA-Public Use
  Company Number: US-MYLANLABS-2022M1122495

PATIENT
  Sex: Female
  Weight: 72.57 kg

DRUGS (12)
  1. LYRICA [Suspect]
     Active Substance: PREGABALIN
     Indication: Facial pain
     Dosage: 50 MILLIGRAM
     Route: 065
  2. LYRICA [Suspect]
     Active Substance: PREGABALIN
     Indication: Pain in jaw
  3. LYRICA [Suspect]
     Active Substance: PREGABALIN
     Indication: Arthralgia
  4. LYRICA [Suspect]
     Active Substance: PREGABALIN
     Indication: Headache
  5. LYRICA [Suspect]
     Active Substance: PREGABALIN
     Indication: Migraine
  6. LYRICA [Suspect]
     Active Substance: PREGABALIN
     Indication: Eye pain
  7. LYRICA [Suspect]
     Active Substance: PREGABALIN
     Indication: Facial pain
     Dosage: 25 MILLIGRAM
     Route: 065
  8. LYRICA [Suspect]
     Active Substance: PREGABALIN
     Indication: Pain in jaw
  9. LYRICA [Suspect]
     Active Substance: PREGABALIN
     Indication: Arthralgia
  10. LYRICA [Suspect]
     Active Substance: PREGABALIN
     Indication: Eye pain
  11. LYRICA [Suspect]
     Active Substance: PREGABALIN
     Indication: Headache
  12. LYRICA [Suspect]
     Active Substance: PREGABALIN
     Indication: Migraine

REACTIONS (4)
  - Withdrawal syndrome [Not Recovered/Not Resolved]
  - Therapy interrupted [Unknown]
  - Drug ineffective [Unknown]
  - Product use in unapproved indication [Unknown]
